FAERS Safety Report 8354765-7 (Version None)
Quarter: 2012Q2

REPORT INFORMATION
  Report Type: 
  Country: None (occurrence: None)
  Receive Date: 20120511
  Receipt Date: 20120510
  Transmission Date: 20120825
  Serious: Yes (Other)
  Sender: FDA-Public Use
  Company Number: AU-GLAXOSMITHKLINE-B0800948A

PATIENT
  Sex: Male

DRUGS (9)
  1. DUTASTERIDE/TAMSULOSIN HYDROCHLORIDE [Suspect]
     Indication: PRODUCT USED FOR UNKNOWN INDICATION
     Route: 065
     Dates: start: 20120101, end: 20120507
  2. MICARDIS HCT [Concomitant]
  3. PERINDOPRIL ERBUMINE [Concomitant]
  4. LOCAL ANAESTHETIC [Concomitant]
     Dates: start: 20120504
  5. PROSCAR [Concomitant]
  6. GENERAL ANAESTHETIC [Concomitant]
     Dates: start: 20120503
  7. DIGESIC [Concomitant]
  8. LIPITOR [Concomitant]
  9. ACETAMINOPHEN W/ CODEINE [Concomitant]
     Dates: start: 20120504

REACTIONS (6)
  - MALAISE [None]
  - DIZZINESS [None]
  - SYNCOPE [None]
  - ARTHRALGIA [None]
  - PALPITATIONS [None]
  - MUSCULOSKELETAL PAIN [None]
